FAERS Safety Report 24827663 (Version 1)
Quarter: 2025Q1

REPORT INFORMATION
  Report Type: Spontaneous
  Country: AU (occurrence: AU)
  Receive Date: 20250109
  Receipt Date: 20250109
  Transmission Date: 20250409
  Serious: No
  Sender: JAZZ
  Company Number: AU-PHARMAMAR-2024PM000950

PATIENT
  Age: 74 Year
  Sex: Male

DRUGS (2)
  1. ZEPZELCA [Suspect]
     Active Substance: LURBINECTEDIN
     Indication: Prostate cancer
     Dosage: 2 MILLIGRAM/SQ. METER, Q3W (D1Q3W)
  2. IRINOTECAN [Suspect]
     Active Substance: IRINOTECAN
     Indication: Prostate cancer
     Dosage: 75 MILLIGRAM/SQ. METER, Q3W (D1D8Q3W)

REACTIONS (1)
  - Off label use [Unknown]
